FAERS Safety Report 9023772 (Version 3)
Quarter: 2013Q2

REPORT INFORMATION
  Report Type: Spontaneous
  Country: US (occurrence: US)
  Receive Date: 20130121
  Receipt Date: 20130531
  Transmission Date: 20140414
  Serious: No
  Sender: FDA-Public Use
  Company Number: US-PFIZER INC-2013024492

PATIENT
  Age: 97 Year
  Sex: Female
  Weight: 48.1 kg

DRUGS (3)
  1. NEURONTIN [Suspect]
     Indication: NEURALGIA
     Dosage: 100 MG, UNK
     Route: 048
  2. XALATAN [Concomitant]
     Dosage: UNK
  3. ALENDRONATE SODIUM [Concomitant]
     Dosage: 70 MG, WEEKLY

REACTIONS (3)
  - Hypersomnia [Unknown]
  - Somnolence [Unknown]
  - Inappropriate schedule of drug administration [Unknown]
